FAERS Safety Report 9629290 (Version 1)
Quarter: 2013Q4

REPORT INFORMATION
  Report Type: Spontaneous
  Country: US (occurrence: US)
  Receive Date: 20131017
  Receipt Date: 20131017
  Transmission Date: 20140711
  Serious: No
  Sender: FDA-Public Use
  Company Number: US-ASTRAZENECA-2013SE70618

PATIENT
  Age: 70 Year
  Sex: Male

DRUGS (1)
  1. CRESTOR [Suspect]
     Route: 048
     Dates: start: 201309, end: 201309

REACTIONS (1)
  - Anxiety [Unknown]
